FAERS Safety Report 4491348-3 (Version None)
Quarter: 2004Q4

REPORT INFORMATION
  Report Type: 
  Country: None (occurrence: None)
  Receive Date: 20041029
  Receipt Date: 20041018
  Transmission Date: 20050328
  Serious: Yes (Death)
  Sender: FDA-Public Use
  Company Number: 2004US001279

PATIENT
  Age: 2 Year
  Sex: Male

DRUGS (2)
  1. PROGRAF [Suspect]
     Indication: PROPHYLAXIS AGAINST TRANSPLANT REJECTION
     Dosage: 0.03 MG/KG, UID/QD, INTRAVENOUS
     Route: 042
  2. MYCOPHENOLATE MOFETIL (MYCOPHENOLATE MOFETIL) [Suspect]
     Indication: PROPHYLAXIS AGAINST TRANSPLANT REJECTION
     Dosage: 15.00 MG/KG

REACTIONS (3)
  - GRAFT VERSUS HOST DISEASE [None]
  - LEUKOENCEPHALOPATHY [None]
  - NEUROTOXICITY [None]
